FAERS Safety Report 5349198-1 (Version None)
Quarter: 2007Q2

REPORT INFORMATION
  Report Type: 
  Country: None (occurrence: None)
  Receive Date: 20070607
  Receipt Date: 20070528
  Transmission Date: 20071010
  Serious: Yes (Hospitalization, Other)
  Sender: FDA-Public Use
  Company Number: CA-ASTRAZENECA-2003UW14175

PATIENT
  Age: 28 Year
  Sex: Male
  Weight: 102 kg

DRUGS (10)
  1. SEROQUEL [Suspect]
     Dates: end: 20030129
  2. SEROQUEL [Suspect]
     Route: 048
  3. CLOZARIL [Suspect]
     Dates: start: 20000306, end: 20030131
  4. CLOZARIL [Suspect]
     Dates: start: 19950101
  5. VALPROIC ACID [Suspect]
     Dates: end: 20030129
  6. FLUANXOL [Suspect]
     Dates: end: 20030129
  7. CLONAZEPAM [Concomitant]
     Dates: end: 20030129
  8. PAXIL [Concomitant]
     Dates: end: 20030129
  9. RIVOTRIL [Concomitant]
     Dates: end: 20030129
  10. TENORMIN [Concomitant]
     Dates: end: 20030129

REACTIONS (4)
  - HYPERGLYCAEMIA [None]
  - PANCREATITIS ACUTE [None]
  - PULMONARY EMBOLISM [None]
  - WHITE BLOOD CELL DISORDER [None]
